FAERS Safety Report 7443003-5 (Version None)
Quarter: 2011Q2

REPORT INFORMATION
  Report Type: 
  Country: None (occurrence: None)
  Receive Date: 20110428
  Receipt Date: 20110421
  Transmission Date: 20111010
  Serious: Yes (Hospitalization)
  Sender: FDA-Public Use
  Company Number: DE-BRISTOL-MYERS SQUIBB COMPANY-15630064

PATIENT
  Age: 65 Year
  Sex: Male

DRUGS (3)
  1. FLUOROURACIL [Concomitant]
     Indication: COLORECTAL CANCER
  2. ERBITUX [Suspect]
     Indication: COLORECTAL CANCER
     Dosage: RECENT DOSE: 28FEB2011 03MAY TO 28FEB11(301D) RESTARTED ON 21MAR2011(400MG/M2)
     Route: 042
     Dates: start: 20100503
  3. IRINOTECAN [Concomitant]
     Indication: COLORECTAL CANCER
     Dates: start: 20100701, end: 20100713

REACTIONS (1)
  - RETINAL DETACHMENT [None]
